FAERS Safety Report 8248472-9 (Version None)
Quarter: 2012Q1

REPORT INFORMATION
  Report Type: 
  Country: None (occurrence: None)
  Receive Date: 20120330
  Receipt Date: 20120323
  Transmission Date: 20120608
  Serious: Yes (Hospitalization)
  Sender: FDA-Public Use
  Company Number: FR-MERCK-1203FRA00088

PATIENT
  Age: 74 Year
  Sex: Male
  Weight: 83 kg

DRUGS (8)
  1. POLYETHYLENE GLYCOL 4000 [Concomitant]
     Route: 065
  2. FOSAMAX PLUS D [Suspect]
     Route: 048
     Dates: start: 20110601, end: 20120101
  3. HYDROCHLOROTHIAZIDE AND IRBESARTAN [Concomitant]
     Route: 065
  4. ALLOPURINOL [Suspect]
     Route: 048
     Dates: start: 20070101
  5. PERINDOPRIL ARGININE [Concomitant]
     Route: 065
  6. ASPIRIN LYSINE [Concomitant]
     Route: 065
  7. ACETAMINOPHEN AND CAFFEINE AND OPIUM [Concomitant]
     Route: 065
     Dates: end: 20120116
  8. ZOLPIDEM TARTRATE [Concomitant]
     Route: 065

REACTIONS (2)
  - DRUG RASH WITH EOSINOPHILIA AND SYSTEMIC SYMPTOMS [None]
  - EOSINOPHILIA [None]
